FAERS Safety Report 6318568-7 (Version None)
Quarter: 2009Q3

REPORT INFORMATION
  Report Type: 
  Country: None (occurrence: None)
  Receive Date: 20090821
  Receipt Date: 20090814
  Transmission Date: 20100115
  Serious: Yes (Other)
  Sender: FDA-Public Use
  Company Number: PHHY2009DE34517

PATIENT
  Age: 67 Year
  Sex: Male

DRUGS (6)
  1. ZOMETA [Suspect]
     Route: 042
  2. AMLODIPINE [Concomitant]
  3. ASPIRIN [Concomitant]
  4. HYDROCHLOROTHIAZIDE [Concomitant]
  5. METFORMIN HCL [Concomitant]
  6. GLIB ABZ [Concomitant]

REACTIONS (1)
  - OSTEONECROSIS [None]
